FAERS Safety Report 9695870 (Version 2)
Quarter: 2013Q4

REPORT INFORMATION
  Report Type: Spontaneous
  Country: PT (occurrence: PT)
  Receive Date: 20131119
  Receipt Date: 20131119
  Transmission Date: 20140711
  Serious: Yes (Hospitalization)
  Sender: FDA-Public Use
  Company Number: PT-GE HEALTHCARE MEDICAL DIAGNOSTICS-VISP-PR-1310S-0866

PATIENT
  Age: 59 Year
  Sex: Female

DRUGS (2)
  1. VISIPAQUE [Suspect]
     Indication: BREAST CANCER
     Route: 042
     Dates: start: 20131001, end: 20131001
  2. VISIPAQUE [Suspect]
     Indication: DIAGNOSTIC PROCEDURE

REACTIONS (2)
  - Respiratory failure [Recovered/Resolved]
  - Anaphylactic reaction [Recovered/Resolved]
